FAERS Safety Report 15320738 (Version 2)
Quarter: 2019Q2

REPORT INFORMATION
  Report Type: Spontaneous
  Country: AT (occurrence: AT)
  Receive Date: 20180827
  Receipt Date: 20190409
  Transmission Date: 20190711
  Serious: Yes (Death)
  Sender: FDA-Public Use
  Company Number: PHHY2018AT077665

PATIENT
  Age: 76 Year
  Sex: Male

DRUGS (17)
  1. ANIDULAFUNGIN [Concomitant]
     Active Substance: ANIDULAFUNGIN
     Indication: ANTIFUNGAL PROPHYLAXIS
     Dosage: 100 MG, QD
     Route: 051
  2. AMPHOTERICIN B. [Concomitant]
     Active Substance: AMPHOTERICIN B
     Indication: ANTIFUNGAL PROPHYLAXIS
     Dosage: 10 MG, TID
     Route: 055
  3. GENTAMICIN. [Concomitant]
     Active Substance: GENTAMICIN
     Indication: PROPHYLAXIS
     Route: 065
  4. CEFEPIME [Concomitant]
     Active Substance: CEFEPIME HYDROCHLORIDE
     Indication: PROPHYLAXIS
     Route: 065
  5. PIPERACILLIN SODIUM [Concomitant]
     Active Substance: PIPERACILLIN SODIUM
     Indication: PROPHYLAXIS
     Route: 065
  6. MEROPENEM. [Concomitant]
     Active Substance: MEROPENEM
     Indication: PROPHYLAXIS
     Route: 065
  7. FILGRASTIM [Concomitant]
     Active Substance: FILGRASTIM
     Indication: NEUTROPENIA
     Dosage: (48 MIO IU/DAY)
     Route: 058
  8. FLUCONAZOLE. [Concomitant]
     Active Substance: FLUCONAZOLE
     Indication: ANTIFUNGAL PROPHYLAXIS
     Dosage: 600 MG, QD
     Route: 051
  9. TACROLIMUS. [Concomitant]
     Active Substance: TACROLIMUS
     Indication: IMMUNOSUPPRESSION
     Dosage: 0.1 MG/KG, UNK
     Route: 065
  10. TEICOPLANIN [Concomitant]
     Active Substance: TEICOPLANIN
     Indication: PROPHYLAXIS
     Route: 065
  11. LINEZOLID. [Concomitant]
     Active Substance: LINEZOLID
     Indication: PROPHYLAXIS
     Route: 065
  12. SULFAMETROLE SODIUM [Concomitant]
     Indication: PROPHYLAXIS
     Route: 065
  13. VORICONAZOLE. [Suspect]
     Active Substance: VORICONAZOLE
     Indication: ANTIFUNGAL TREATMENT
     Dosage: 300 MG, BID
     Route: 065
  14. AVIBACTAM SODIUM [Concomitant]
     Indication: PROPHYLAXIS
     Route: 065
  15. CEFTOLOZANE SULFATE [Concomitant]
     Active Substance: CEFTOLOZANE SULFATE
     Indication: PROPHYLAXIS
     Route: 065
  16. PREDNISOLONE. [Concomitant]
     Active Substance: PREDNISOLONE
     Indication: IMMUNOSUPPRESSION
     Dosage: UNK (15 MG/DAY, 50 MG/D?0.6 MG/KG ON POSTOPERATIVE DAY FOLLOWED BY TAPERING)
     Route: 065
  17. CIPROFLOXACIN. [Concomitant]
     Active Substance: CIPROFLOXACIN
     Indication: PROPHYLAXIS
     Route: 065

REACTIONS (2)
  - Condition aggravated [Fatal]
  - Drug ineffective [Fatal]
